FAERS Safety Report 15703108 (Version 4)
Quarter: 2021Q2

REPORT INFORMATION
  Report Type: Other
  Country: CA (occurrence: CA)
  Receive Date: 20181210
  Receipt Date: 20210419
  Transmission Date: 20210716
  Serious: Yes (Life-Threatening, Other)
  Sender: FDA-Public Use
  Company Number: CA-ROCHE-1957139

PATIENT
  Age: 63 Year
  Sex: Female

DRUGS (11)
  1. XOLAIR [Suspect]
     Active Substance: OMALIZUMAB
     Route: 058
     Dates: start: 20170615
  2. XOLAIR [Suspect]
     Active Substance: OMALIZUMAB
     Route: 058
     Dates: start: 20170810
  3. XOLAIR [Suspect]
     Active Substance: OMALIZUMAB
     Route: 058
     Dates: start: 20170907
  4. XOLAIR [Suspect]
     Active Substance: OMALIZUMAB
     Route: 058
     Dates: start: 20170516
  5. XOLAIR [Suspect]
     Active Substance: OMALIZUMAB
     Indication: CHRONIC SPONTANEOUS URTICARIA
     Route: 058
     Dates: start: 20140929
  6. XOLAIR [Suspect]
     Active Substance: OMALIZUMAB
     Route: 058
     Dates: start: 20170713
  7. XOLAIR [Suspect]
     Active Substance: OMALIZUMAB
     Route: 058
     Dates: start: 20160704
  8. XOLAIR [Suspect]
     Active Substance: OMALIZUMAB
     Route: 058
     Dates: start: 20171102
  9. XOLAIR [Suspect]
     Active Substance: OMALIZUMAB
     Route: 058
     Dates: start: 20181129
  10. XOLAIR [Suspect]
     Active Substance: OMALIZUMAB
     Route: 058
     Dates: start: 20190321
  11. XOLAIR [Suspect]
     Active Substance: OMALIZUMAB
     Route: 058
     Dates: start: 20181101

REACTIONS (26)
  - Loss of consciousness [Unknown]
  - Facial paralysis [Recovered/Resolved]
  - Crying [Unknown]
  - Suicide attempt [Unknown]
  - Urticaria [Not Recovered/Not Resolved]
  - Memory impairment [Unknown]
  - Anaphylactic reaction [Unknown]
  - Stress [Unknown]
  - Pain [Unknown]
  - Pain in extremity [Unknown]
  - Lip swelling [Recovered/Resolved]
  - Skin plaque [Not Recovered/Not Resolved]
  - Scratch [Unknown]
  - Erythema [Recovered/Resolved]
  - Hypoaesthesia oral [Recovered/Resolved]
  - Insomnia [Unknown]
  - Nervousness [Unknown]
  - Suicidal ideation [Unknown]
  - Peripheral swelling [Recovering/Resolving]
  - Skin burning sensation [Recovering/Resolving]
  - Fall [Unknown]
  - Wound [Unknown]
  - Anxiety [Unknown]
  - Injection site pain [Unknown]
  - Swelling face [Recovering/Resolving]
  - Pruritus [Unknown]

NARRATIVE: CASE EVENT DATE: 2016
